FAERS Safety Report 5183982-2 (Version None)
Quarter: 2006Q4

REPORT INFORMATION
  Report Type: 
  Country: None (occurrence: None)
  Receive Date: 20061220
  Receipt Date: 20060303
  Transmission Date: 20070319
  Serious: No
  Sender: FDA-Public Use
  Company Number: US-GLAXOSMITHKLINE-A0596096A

PATIENT
  Sex: Male

DRUGS (1)
  1. NICODERM CQ [Suspect]

REACTIONS (7)
  - APPLICATION SITE ERYTHEMA [None]
  - APPLICATION SITE EXFOLIATION [None]
  - APPLICATION SITE IRRITATION [None]
  - APPLICATION SITE PAIN [None]
  - APPLICATION SITE SCAB [None]
  - DIZZINESS [None]
  - NAUSEA [None]
